FAERS Safety Report 4523041-2 (Version None)
Quarter: 2004Q4

REPORT INFORMATION
  Report Type: 
  Country: None (occurrence: None)
  Receive Date: 20041210
  Receipt Date: 20041130
  Transmission Date: 20050328
  Serious: Yes (Hospitalization)
  Sender: FDA-Public Use
  Company Number: DE-BRISTOL-MYERS SQUIBB COMPANY-12779260

PATIENT
  Age: 71 Year
  Sex: Female
  Weight: 69 kg

DRUGS (7)
  1. PACLITAXEL [Suspect]
     Indication: OVARIAN CANCER
     Dates: start: 20030930, end: 20030930
  2. CARBOPLATIN [Suspect]
     Indication: OVARIAN CANCER
     Dosage: INITIAL DOSE 02-SEP-2004
     Dates: start: 20030930, end: 20030930
  3. GEMZAR [Suspect]
     Indication: OVARIAN CANCER
     Dosage: INITIAL DOSE 02-SEP-2003
     Route: 042
     Dates: start: 20030930, end: 20030930
  4. DEXAMETHASONE [Concomitant]
     Indication: PROPHYLAXIS
     Dates: start: 20030930
  5. NAVOBAN [Concomitant]
     Indication: PROPHYLAXIS
     Dates: start: 20030930
  6. FENISTIL [Concomitant]
     Indication: PROPHYLAXIS
     Dates: start: 20030930
  7. SOSTRIL [Concomitant]
     Indication: PROPHYLAXIS
     Dates: start: 20030930

REACTIONS (2)
  - APPLICATION SITE PAIN [None]
  - PHLEBOTHROMBOSIS [None]
